FAERS Safety Report 16383577 (Version 1)
Quarter: 2019Q2

REPORT INFORMATION
  Report Type: Spontaneous
  Country: US (occurrence: US)
  Receive Date: 20190426
  Receipt Date: 20190426
  Transmission Date: 20190711
  Serious: No
  Sender: FDA-Public Use
  Company Number: None

PATIENT
  Age: 44 Year
  Sex: Male

DRUGS (13)
  1. IPIPEN [Concomitant]
  2. OXYCODONE [Concomitant]
     Active Substance: OXYCODONE
  3. SALICYLIC ACIE IN PETRLATUM [Concomitant]
  4. METHIMAZOLE. [Concomitant]
     Active Substance: METHIMAZOLE
  5. NADOLOL. [Concomitant]
     Active Substance: NADOLOL
  6. TRMACLINOLONE TOP OINT [Concomitant]
  7. FUROSEMIDE. [Concomitant]
     Active Substance: FUROSEMIDE
  8. ADEMPAS [Suspect]
     Active Substance: RIOCIGUAT
     Indication: PULMONARY HYPERTENSION
     Route: 048
     Dates: start: 201712, end: 201904
  9. SILDENAFIL. [Concomitant]
     Active Substance: SILDENAFIL
  10. TOPIRAMATE. [Concomitant]
     Active Substance: TOPIRAMATE
  11. OPSUMIT [Concomitant]
     Active Substance: MACITENTAN
  12. BACLOFEN. [Concomitant]
     Active Substance: BACLOFEN
  13. CLOBETAROL TOP OINT [Concomitant]

REACTIONS (1)
  - Therapy cessation [None]

NARRATIVE: CASE EVENT DATE: 20190426
